FAERS Safety Report 6531539-0 (Version None)
Quarter: 2010Q1

REPORT INFORMATION
  Report Type: 
  Country: None (occurrence: None)
  Receive Date: 20100108
  Receipt Date: 20091228
  Transmission Date: 20100710
  Serious: Yes (Other)
  Sender: FDA-Public Use
  Company Number: JP-BAYER-200915383BYL

PATIENT
  Age: 59 Year
  Sex: Female

DRUGS (1)
  1. EOB PRIMOVIST INJ. SYRINGE [Suspect]
     Indication: NUCLEAR MAGNETIC RESONANCE IMAGING ABDOMINAL
     Dosage: 0.1ML/KG
     Route: 042
     Dates: start: 20091226, end: 20091226

REACTIONS (6)
  - BLOOD PRESSURE DECREASED [None]
  - EYE ROLLING [None]
  - NAUSEA [None]
  - VENTRICULAR FIBRILLATION [None]
  - VENTRICULAR TACHYCARDIA [None]
  - VOMITING [None]
